FAERS Safety Report 20028010 (Version 1)
Quarter: 2021Q4

REPORT INFORMATION
  Report Type: Spontaneous
  Country: RU (occurrence: None)
  Receive Date: 20211103
  Receipt Date: 20211103
  Transmission Date: 20220303
  Serious: Yes (Other)
  Sender: FDA-Public Use
  Company Number: RU-ROCHE-2947085

PATIENT
  Age: 60 Year
  Sex: Male

DRUGS (4)
  1. VEMURAFENIB [Suspect]
     Active Substance: VEMURAFENIB
     Indication: Malignant melanoma
     Route: 065
     Dates: start: 20191128
  2. VEMURAFENIB [Suspect]
     Active Substance: VEMURAFENIB
     Route: 065
     Dates: start: 202110
  3. COBIMETINIB [Suspect]
     Active Substance: COBIMETINIB
     Indication: Malignant melanoma
     Dosage: 3 TABLETS, 20 MG EACH
     Route: 065
     Dates: start: 20191128
  4. COBIMETINIB [Suspect]
     Active Substance: COBIMETINIB
     Dosage: 3 TABLETS, 20 MG EACH
     Route: 065
     Dates: start: 202110

REACTIONS (1)
  - Pneumonia viral [Unknown]
